FAERS Safety Report 5171034-7 (Version None)
Quarter: 2006Q4

REPORT INFORMATION
  Report Type: 
  Country: None (occurrence: None)
  Receive Date: 20061206
  Receipt Date: 20061206
  Transmission Date: 20070319
  Serious: Yes (Hospitalization)
  Sender: FDA-Public Use
  Company Number: None

PATIENT
  Age: 55 Year
  Sex: Male
  Weight: 71 kg

DRUGS (1)
  1. ASPIRIN [Suspect]
     Dosage: UNKNOWN, NOT PROVIDED BY THE VA

REACTIONS (6)
  - DRUG TOXICITY [None]
  - DYSARTHRIA [None]
  - FATIGUE [None]
  - MENTAL STATUS CHANGES [None]
  - METABOLIC ACIDOSIS [None]
  - TREMOR [None]
